FAERS Safety Report 8871234 (Version 1)
Quarter: 2012Q4

REPORT INFORMATION
  Report Type: 
  Country: US (occurrence: US)
  Receive Date: 20121029
  Receipt Date: 20121029
  Transmission Date: 20130627
  Serious: Yes (Other)
  Sender: FDA-Public Use
  Company Number: US-ROCHE-791935

PATIENT
  Sex: Male
  Weight: 70.37 kg

DRUGS (6)
  1. ACCUTANE [Suspect]
     Indication: ACNE CYSTIC
     Route: 065
  2. ACCUTANE [Suspect]
     Route: 065
     Dates: start: 200407, end: 200409
  3. ACCUTANE [Suspect]
     Dosage: First course
     Route: 065
  4. ACCUTANE [Suspect]
     Dosage: second course
     Route: 065
     Dates: start: 200409, end: 200501
  5. AMNESTEEM [Suspect]
     Indication: ACNE
     Route: 048
     Dates: start: 200409, end: 200501
  6. AMNESTEEM [Suspect]
     Route: 065
     Dates: start: 200407, end: 200409

REACTIONS (7)
  - Colitis ulcerative [Unknown]
  - Inflammatory bowel disease [Unknown]
  - Depression [Unknown]
  - Suicide attempt [Unknown]
  - Dry skin [Unknown]
  - Lip dry [Unknown]
  - Headache [Unknown]
